FAERS Safety Report 10240765 (Version 1)
Quarter: 2014Q2

REPORT INFORMATION
  Report Type: Spontaneous
  Country: US (occurrence: US)
  Receive Date: 20140617
  Receipt Date: 20140617
  Transmission Date: 20141212
  Serious: No
  Sender: FDA-Public Use
  Company Number: US-PFIZER INC-2014162557

PATIENT
  Age: 49 Year
  Sex: Male
  Weight: 80.27 kg

DRUGS (2)
  1. GABAPENTIN [Suspect]
     Indication: FIBROMYALGIA
     Dosage: UNK
  2. GABAPENTIN [Suspect]
     Indication: OSTEOARTHRITIS

REACTIONS (1)
  - Drug ineffective [Unknown]
